FAERS Safety Report 25117148 (Version 1)
Quarter: 2025Q1

REPORT INFORMATION
  Report Type: Spontaneous
  Country: FR (occurrence: FR)
  Receive Date: 20250325
  Receipt Date: 20250325
  Transmission Date: 20250409
  Serious: Yes (Hospitalization)
  Sender: HIKMA
  Company Number: None

PATIENT
  Age: 66 Year
  Sex: Male
  Weight: 84 kg

DRUGS (1)
  1. LINEZOLID [Suspect]
     Active Substance: LINEZOLID
     Indication: Septic shock
     Route: 065
     Dates: start: 20250130, end: 20250210

REACTIONS (1)
  - Blood lactic acid increased [Recovered/Resolved]
